FAERS Safety Report 6767941-1 (Version None)
Quarter: 2010Q2

REPORT INFORMATION
  Report Type: 
  Country: None (occurrence: None)
  Receive Date: 20100610
  Receipt Date: 20100520
  Transmission Date: 20101027
  Serious: Yes (Hospitalization, Other)
  Sender: FDA-Public Use
  Company Number: JPI-P-010391

PATIENT
  Age: 25 Year
  Sex: Female

DRUGS (8)
  1. XYREM [Suspect]
     Indication: CATAPLEXY
     Dosage: 4.5 GM (2.25 GM, 2 IN 1 D), ORAL; ORAL
     Route: 048
     Dates: start: 20100302, end: 20100101
  2. XYREM [Suspect]
     Indication: SOMNOLENCE
     Dosage: 4.5 GM (2.25 GM, 2 IN 1 D), ORAL; ORAL
     Route: 048
     Dates: start: 20100302, end: 20100101
  3. XYREM [Suspect]
     Indication: SUICIDE ATTEMPT
     Dosage: 4.5 GM (2.25 GM, 2 IN 1 D), ORAL; ORAL
     Route: 048
     Dates: start: 20100302, end: 20100101
  4. XYREM [Suspect]
     Indication: CATAPLEXY
     Dosage: 4.5 GM (2.25 GM, 2 IN 1 D), ORAL; ORAL
     Route: 048
     Dates: start: 20100126
  5. XYREM [Suspect]
     Indication: SOMNOLENCE
     Dosage: 4.5 GM (2.25 GM, 2 IN 1 D), ORAL; ORAL
     Route: 048
     Dates: start: 20100126
  6. XYREM [Suspect]
     Indication: SUICIDE ATTEMPT
     Dosage: 4.5 GM (2.25 GM, 2 IN 1 D), ORAL; ORAL
     Route: 048
     Dates: start: 20100126
  7. VENLAFAXINE [Suspect]
     Indication: SUICIDE ATTEMPT
     Dosage: (75 MG), ORAL
     Route: 048
     Dates: start: 20050801
  8. LEVOTHYROXINE SODIUM [Concomitant]

REACTIONS (8)
  - AGITATION [None]
  - BLOOD PH INCREASED [None]
  - BLOOD PRESSURE SYSTOLIC INCREASED [None]
  - CONVULSION [None]
  - DEPRESSION [None]
  - DRUG SCREEN POSITIVE [None]
  - PO2 INCREASED [None]
  - SUICIDE ATTEMPT [None]
